FAERS Safety Report 8883993 (Version 1)
Quarter: 2012Q4

REPORT INFORMATION
  Report Type: 
  Country: JP (occurrence: JP)
  Receive Date: 20121102
  Receipt Date: 20121102
  Transmission Date: 20130627
  Serious: Yes (Hospitalization)
  Sender: FDA-Public Use
  Company Number: JP-SANOFI-AVENTIS-2012SA079343

PATIENT
  Age: 29 Year
  Sex: Female

DRUGS (2)
  1. MYSLEE [Suspect]
     Indication: DRUG USE FOR UNKNOWN INDICATION
     Dosage: took 10 tablets of 10 mg
     Route: 048
  2. FLUVOXAMINE [Suspect]
     Indication: DRUG USE FOR UNKNOWN INDICATION
     Route: 048

REACTIONS (7)
  - Cardiac arrest [Recovered/Resolved]
  - Convulsion [Recovering/Resolving]
  - Acute respiratory distress syndrome [Recovering/Resolving]
  - Dysarthria [Unknown]
  - Intentional overdose [Unknown]
  - Depressed level of consciousness [Unknown]
  - Vomiting [Unknown]
